FAERS Safety Report 6541553-7 (Version None)
Quarter: 2010Q1

REPORT INFORMATION
  Report Type: 
  Country: None (occurrence: None)
  Receive Date: 20100119
  Receipt Date: 20100113
  Transmission Date: 20100710
  Serious: Yes (Hospitalization)
  Sender: FDA-Public Use
  Company Number: DE-ROCHE-661308

PATIENT
  Sex: Female
  Weight: 70 kg

DRUGS (3)
  1. CAPECITABINE [Suspect]
     Indication: RECTAL CANCER
     Dosage: ACTUAL DOSE:3000 MG.LAST DOSE: 29 JULY2009, DOSE: 3 X 500MG MORNING , 3 X 500 MG EVENING
     Route: 048
     Dates: start: 20090622
  2. CAPECITABINE [Suspect]
     Dosage: ACTUAL DOSE GIVEN: 1500 MG,DATE OF RECENT ADMINISTRATION 28 DECEMBER 2009.
     Route: 048
  3. L-THYROXIN [Concomitant]
     Indication: HYPOTHYROIDISM
     Dosage: FREQUENCY: 1X1
     Route: 048

REACTIONS (4)
  - ABDOMINAL PAIN [None]
  - CONSTIPATION [None]
  - INTESTINAL OBSTRUCTION [None]
  - UROSEPSIS [None]
